FAERS Safety Report 17153302 (Version 3)
Quarter: 2020Q4

REPORT INFORMATION
  Report Type: Spontaneous
  Country: US (occurrence: US)
  Receive Date: 20191213
  Receipt Date: 20201014
  Transmission Date: 20210113
  Serious: Yes (Other)
  Sender: FDA-Public Use
  Company Number: US-ELI_LILLY_AND_COMPANY-US201911007330

PATIENT
  Sex: Female

DRUGS (7)
  1. KEFLEX [Suspect]
     Active Substance: CEPHALEXIN
     Indication: URINARY TRACT INFECTION
     Dosage: 100 MG, TID
     Route: 065
  2. BASAGLAR [Suspect]
     Active Substance: INSULIN GLARGINE
     Indication: DIABETES MELLITUS
     Dosage: 14 U, DAILY
     Route: 065
     Dates: start: 20190427
  3. BASAGLAR [Suspect]
     Active Substance: INSULIN GLARGINE
     Indication: DIABETES MELLITUS
     Dosage: 14 U, DAILY
     Route: 065
     Dates: start: 20190427
  4. MACROBID [Suspect]
     Active Substance: NITROFURANTOIN\NITROFURANTOIN MONOHYDRATE
     Indication: URINARY TRACT INFECTION
     Dosage: UNK UNK, UNKNOWN
     Route: 065
  5. BASAGLAR [Suspect]
     Active Substance: INSULIN GLARGINE
     Dosage: 14 U, DAILY
     Route: 065
     Dates: end: 202009
  6. BASAGLAR [Suspect]
     Active Substance: INSULIN GLARGINE
     Dosage: 14 U, DAILY
     Route: 065
     Dates: end: 202009
  7. JANUVIA [Concomitant]
     Active Substance: SITAGLIPTIN PHOSPHATE
     Indication: PRODUCT USED FOR UNKNOWN INDICATION
     Dosage: 100 MG, DAILY
     Route: 065

REACTIONS (10)
  - Upper limb fracture [Unknown]
  - Nerve compression [Unknown]
  - Oropharyngeal pain [Unknown]
  - Blood glucose increased [Unknown]
  - Sciatica [Unknown]
  - Gastrointestinal haemorrhage [Unknown]
  - Foot fracture [Unknown]
  - Urinary tract infection [Unknown]
  - Wrist fracture [Unknown]
  - Skin discolouration [Unknown]
